FAERS Safety Report 6688940-4 (Version None)
Quarter: 2010Q2

REPORT INFORMATION
  Report Type: 
  Country: None (occurrence: None)
  Receive Date: 20100420
  Receipt Date: 20100407
  Transmission Date: 20101027
  Serious: Yes (Other)
  Sender: FDA-Public Use
  Company Number: US-ELI_LILLY_AND_COMPANY-US201004002752

PATIENT
  Sex: Female

DRUGS (8)
  1. FORTEO [Suspect]
     Indication: OSTEOPOROSIS
     Dosage: 20 UG, DAILY (1/D)
  2. EVISTA [Suspect]
     Dosage: 60 MG, DAILY (1/D)
  3. SYNTHROID [Concomitant]
  4. ANTIHYPERTENSIVES [Concomitant]
  5. CLONIDINE [Concomitant]
  6. NASONEX [Concomitant]
  7. ALBUTEROL [Concomitant]
  8. XALATAN [Concomitant]

REACTIONS (9)
  - ASTHENIA [None]
  - COLD SWEAT [None]
  - CONTUSION [None]
  - DIZZINESS [None]
  - FATIGUE [None]
  - HYPERHIDROSIS [None]
  - LOSS OF CONSCIOUSNESS [None]
  - NAUSEA [None]
  - VERTEBROPLASTY [None]
